FAERS Safety Report 20655525 (Version 1)
Quarter: 2022Q1

REPORT INFORMATION
  Report Type: Spontaneous
  Country: US (occurrence: None)
  Receive Date: 20220330
  Receipt Date: 20220330
  Transmission Date: 20220423
  Serious: Yes (Death, Life-Threatening, Hospitalization, Other)
  Sender: FDA-Public Use
  Company Number: None

PATIENT
  Age: 27 Year

DRUGS (2)
  1. CLONAZEPAM [Suspect]
     Active Substance: CLONAZEPAM
     Indication: Sleep disorder
     Dosage: OTHER FREQUENCY : 1-2X DAILY ORAL?
     Route: 048
     Dates: start: 20170825, end: 20210627
  2. CLONAZEPAM [Suspect]
     Active Substance: CLONAZEPAM
     Indication: Anxiety

REACTIONS (12)
  - Pain [None]
  - Mental disorder [None]
  - Anxiety [None]
  - Head discomfort [None]
  - Unevaluable event [None]
  - Burning sensation [None]
  - Paraesthesia [None]
  - Cognitive disorder [None]
  - Feeling abnormal [None]
  - Affect lability [None]
  - Anhedonia [None]
  - Suicidal ideation [None]

NARRATIVE: CASE EVENT DATE: 20210806
